FAERS Safety Report 23752929 (Version 2)
Quarter: 2024Q2

REPORT INFORMATION
  Report Type: Spontaneous
  Country: US (occurrence: US)
  Receive Date: 20240417
  Receipt Date: 20240419
  Transmission Date: 20240716
  Serious: Yes (Death)
  Sender: FDA-Public Use
  Company Number: US-PFIZER INC-202400087852

PATIENT
  Age: 80 Year
  Sex: Male
  Weight: 52.154 kg

DRUGS (1)
  1. VYNDAMAX [Suspect]
     Active Substance: TAFAMIDIS
     Indication: Cardiac amyloidosis
     Dosage: 1 CAPSULE BY MOUTH DAILY, AT DINNER, 61MG
     Route: 048
     Dates: start: 2020, end: 20240404

REACTIONS (1)
  - Parkinson^s disease [Fatal]
